FAERS Safety Report 23647337 (Version 1)
Quarter: 2024Q1

REPORT INFORMATION
  Report Type: Spontaneous
  Country: US (occurrence: US)
  Receive Date: 20240319
  Receipt Date: 20240319
  Transmission Date: 20240409
  Serious: Yes (Life-Threatening, Hospitalization)
  Sender: FDA-Public Use
  Company Number: US-MYLANLABS-2024M1021917

PATIENT
  Age: 60 Year
  Sex: Female

DRUGS (2)
  1. TRANEXAMIC ACID [Suspect]
     Active Substance: TRANEXAMIC ACID
     Indication: Post procedural haemorrhage
     Dosage: UNK, NEBULISED
     Route: 065
  2. TRANEXAMIC ACID [Suspect]
     Active Substance: TRANEXAMIC ACID
     Indication: Haemoptysis

REACTIONS (5)
  - Thrombosis [Recovered/Resolved]
  - Laryngeal disorder [Recovered/Resolved]
  - Obstructive airways disorder [Recovered/Resolved]
  - Cyanosis [Recovered/Resolved]
  - Off label use [Unknown]
